FAERS Safety Report 4371780-9 (Version None)
Quarter: 2004Q2

REPORT INFORMATION
  Report Type: 
  Country: None (occurrence: None)
  Receive Date: 20040602
  Receipt Date: 20040525
  Transmission Date: 20050107
  Serious: Yes (Hospitalization, Disabling)
  Sender: FDA-Public Use
  Company Number: HQ5796710SEP2001

PATIENT
  Age: 50 Year
  Sex: Female

DRUGS (12)
  1. DIMETAPP [Suspect]
     Indication: INFLUENZA LIKE ILLNESS
  2. DIMETAPP [Suspect]
     Indication: NASOPHARYNGITIS
  3. ALKA-SELTZER PLUS (ACETYLSALICYLIC ACID/CHLORPHENAMINE MALEATE/PHENYLP [Suspect]
     Indication: INFLUENZA LIKE ILLNESS
     Dosage: ORAL
     Route: 048
  4. ALKA-SELTZER PLUS (ACETYLSALICYLIC ACID/CHLORPHENAMINE MALEATE/PHENYLP [Suspect]
     Indication: NASOPHARYNGITIS
     Dosage: ORAL
     Route: 048
  5. CONTAC [Suspect]
     Indication: INFLUENZA LIKE ILLNESS
  6. CONTAC [Suspect]
     Indication: NASOPHARYNGITIS
  7. DRISTAN DECONGESTANT/OLD FORM/ (ACETYLSALICYLIC ACID/ALUMINU HYDROXIDE [Suspect]
     Indication: HEADACHE
     Dosage: ORAL
     Route: 048
  8. DRISTAN DECONGESTANT/OLD FORM/ (ACETYLSALICYLIC ACID/ALUMINU HYDROXIDE [Suspect]
     Indication: HYPERSENSITIVITY
     Dosage: ORAL
     Route: 048
  9. UNSPECIFIED NASAL PREPARATION (UNSPECIFIED NASAL PREPARATION) [Concomitant]
  10. PHENTERMINE [Concomitant]
  11. REDUX [Concomitant]
  12. PREMARIN [Concomitant]

REACTIONS (7)
  - ARRHYTHMIA SUPRAVENTRICULAR [None]
  - ARTERIAL SPASM [None]
  - BLOOD PRESSURE INCREASED [None]
  - CAROTID ARTERY STENOSIS [None]
  - CEREBROVASCULAR ACCIDENT [None]
  - SENSATION OF HEAVINESS [None]
  - TRANSIENT ISCHAEMIC ATTACK [None]
